FAERS Safety Report 7454843-0 (Version None)
Quarter: 2011Q2

REPORT INFORMATION
  Report Type: 
  Country: None (occurrence: None)
  Receive Date: 20110503
  Receipt Date: 20110427
  Transmission Date: 20111010
  Serious: Yes (Hospitalization)
  Sender: FDA-Public Use
  Company Number: DE-ELI_LILLY_AND_COMPANY-DE201104007375

PATIENT
  Sex: Male
  Weight: 76 kg

DRUGS (3)
  1. CETUXIMAB [Suspect]
     Dosage: 400 MG/M2
     Route: 042
     Dates: start: 20110420
  2. CARBOPLATIN [Suspect]
     Dosage: AUC 5
     Route: 042
     Dates: start: 20110420
  3. GEMCITABINE HYDROCHLORIDE [Suspect]
     Dosage: 1200 MG/M2
     Route: 042
     Dates: start: 20110420

REACTIONS (1)
  - MELAENA [None]
